FAERS Safety Report 6259359-5 (Version None)
Quarter: 2009Q3

REPORT INFORMATION
  Report Type: 
  Country: None (occurrence: None)
  Receive Date: 20090706
  Receipt Date: 20090625
  Transmission Date: 20100115
  Serious: Yes (Hospitalization)
  Sender: FDA-Public Use
  Company Number: SPV1-2009-01333

PATIENT
  Sex: Male
  Weight: 77.1 kg

DRUGS (21)
  1. FOSRENOL [Suspect]
     Indication: DIALYSIS
     Dosage: 1000 MG, 4X/DAY;QID, ORAL; 500 MG, 4X/DAY;QID, ORAL
     Route: 048
     Dates: start: 20080101
  2. FOSRENOL [Suspect]
     Indication: HYPERPHOSPHATAEMIA
     Dosage: 1000 MG, 4X/DAY;QID, ORAL; 500 MG, 4X/DAY;QID, ORAL
     Route: 048
     Dates: start: 20080101
  3. INSULIN (INSULIN) [Concomitant]
  4. NEPHROVITE (ASCORBIC ACID, BIOTIN, CALCIUM PANTOTHENATE, CYANOCOBALAMI [Concomitant]
  5. IMDUR [Concomitant]
  6. NITROGLYCERIN [Concomitant]
  7. WELLBUTRIN XL [Concomitant]
  8. PREVACID [Concomitant]
  9. TIMOLOL MALEATE [Concomitant]
  10. QUESTRAN [Concomitant]
  11. BENEFIBER /01648102/ (CYAMOPSIS TETRAGONOLOBA GUM) [Concomitant]
  12. DIGOXIN [Concomitant]
  13. ASPIRIN [Concomitant]
  14. COUMADIN [Concomitant]
  15. LIPITOR [Concomitant]
  16. ALLOPURINOL [Concomitant]
  17. SYNTHROID [Concomitant]
  18. TRAZODONE HCL [Concomitant]
  19. IMODIUM /00384302/ (LOPERAMIDE HYDROCHLORIDE) [Concomitant]
  20. ZESTRIL [Concomitant]
  21. NORVASC [Concomitant]

REACTIONS (2)
  - DYSPHAGIA [None]
  - MYOCARDIAL INFARCTION [None]
